FAERS Safety Report 9633477 (Version 4)
Quarter: 2014Q1

REPORT INFORMATION
  Report Type: Report from Study
  Country: JP (occurrence: JP)
  Receive Date: 20131021
  Receipt Date: 20140228
  Transmission Date: 20141002
  Serious: Yes (Hospitalization)
  Sender: FDA-Public Use
  Company Number: JP-ACTELION-A-CH2013-85355

PATIENT
  Age: 45 Year
  Sex: Female

DRUGS (6)
  1. TRACLEER [Suspect]
     Indication: PULMONARY ARTERIAL HYPERTENSION
     Dosage: 125 MG, BID
     Route: 048
     Dates: start: 20110513
  2. TRACLEER [Suspect]
     Dosage: 62.5 MG, BID
     Route: 048
     Dates: start: 20100903, end: 20110512
  3. FAMOTIDINE [Concomitant]
  4. SULFAMETHOXAZOLE W/TRIMETHOPRIM [Concomitant]
  5. PREDNISOLONE [Concomitant]
  6. OXYGEN [Concomitant]

REACTIONS (4)
  - Pneumonia [Recovering/Resolving]
  - Liver function test abnormal [Recovered/Resolved]
  - Aspartate aminotransferase increased [Recovered/Resolved]
  - Alanine aminotransferase increased [Recovered/Resolved]
